FAERS Safety Report 6507469-7 (Version None)
Quarter: 2009Q4

REPORT INFORMATION
  Report Type: 
  Country: None (occurrence: None)
  Receive Date: 20091221
  Receipt Date: 20091119
  Transmission Date: 20100525
  Serious: No
  Sender: FDA-Public Use
  Company Number: US-BAYER-200940459NA

PATIENT
  Age: 33 Year
  Sex: Female
  Weight: 64 kg

DRUGS (2)
  1. MIRENA [Suspect]
     Indication: MENORRHAGIA
     Dosage: CONTINUOUS
     Route: 015
     Dates: start: 20090301
  2. TOPAMAX [Concomitant]
     Indication: HEADACHE
     Route: 065

REACTIONS (3)
  - AMENORRHOEA [None]
  - HEADACHE [None]
  - MIGRAINE [None]
